FAERS Safety Report 19812432 (Version 1)
Quarter: 2021Q3

REPORT INFORMATION
  Report Type: Spontaneous
  Country: CA (occurrence: CA)
  Receive Date: 20210910
  Receipt Date: 20210910
  Transmission Date: 20211014
  Serious: Yes (Death)
  Sender: FDA-Public Use
  Company Number: CA-TEVA-2021-CA-1949410

PATIENT
  Age: 31 Year
  Sex: Female
  Weight: 81 kg

DRUGS (3)
  1. VENLAFAXINE XR [Suspect]
     Active Substance: VENLAFAXINE HYDROCHLORIDE
     Dosage: 225 MILLIGRAM DAILY;
  2. FENTANYL. [Concomitant]
     Active Substance: FENTANYL
  3. COCAINE [Concomitant]
     Active Substance: COCAINE

REACTIONS (1)
  - Death [Fatal]
